FAERS Safety Report 21580544 (Version 1)
Quarter: 2022Q4

REPORT INFORMATION
  Report Type: Spontaneous
  Country: MK (occurrence: MK)
  Receive Date: 20221110
  Receipt Date: 20221110
  Transmission Date: 20230113
  Serious: Yes (Hospitalization)
  Sender: FDA-Public Use
  Company Number: MK-STRIDES ARCOLAB LIMITED-2022SP014821

PATIENT
  Age: 28 Year
  Sex: Female

DRUGS (7)
  1. METHYLDOPA [Suspect]
     Active Substance: METHYLDOPA
     Indication: Pre-eclampsia
     Dosage: 500 MILLIGRAM; PER DAY
     Route: 065
  2. METHYLDOPA [Suspect]
     Active Substance: METHYLDOPA
     Dosage: 1500 MILLIGRAM; PER DAY
     Route: 065
  3. METHYLDOPA [Suspect]
     Active Substance: METHYLDOPA
     Dosage: UNK; (INCREASED)
     Route: 065
  4. ATENOLOL [Suspect]
     Active Substance: ATENOLOL
     Indication: Pre-eclampsia
     Dosage: 100 MILLIGRAM; PER DAY
     Route: 065
  5. DOXAZOSIN MESYLATE [Suspect]
     Active Substance: DOXAZOSIN MESYLATE
     Indication: Pre-eclampsia
     Dosage: 1.5 MILLIGRAM; PER DAY
     Route: 065
  6. NIFEDIPINE [Suspect]
     Active Substance: NIFEDIPINE
     Indication: Pre-eclampsia
     Dosage: 20 MILLIGRAM; PER DAY; (SLOW RELEASE)
     Route: 065
  7. NIFEDIPINE [Suspect]
     Active Substance: NIFEDIPINE
     Dosage: UNK; (INCREASED)
     Route: 065

REACTIONS (2)
  - Porphyria acute [Recovered/Resolved]
  - Maternal exposure during pregnancy [Unknown]
